FAERS Safety Report 11265669 (Version 3)
Quarter: 2015Q3

REPORT INFORMATION
  Report Type: Spontaneous
  Country: US (occurrence: US)
  Receive Date: 20150713
  Receipt Date: 20150909
  Transmission Date: 20151125
  Serious: Yes (Hospitalization, Other)
  Sender: FDA-Public Use
  Company Number: US-B.I. PHARMACEUTICALS,INC./RIDGEFIELD-2015-BI-36807BP

PATIENT
  Age: 87 Year
  Sex: Male
  Weight: 64.41 kg

DRUGS (1)
  1. OFEV [Suspect]
     Active Substance: NINTEDANIB
     Indication: IDIOPATHIC PULMONARY FIBROSIS
     Dosage: 300 MG
     Route: 048
     Dates: start: 201411, end: 201506

REACTIONS (2)
  - Diarrhoea [Recovered/Resolved]
  - Embolism arterial [Recovered/Resolved]

NARRATIVE: CASE EVENT DATE: 201411
